FAERS Safety Report 11273319 (Version 1)
Quarter: 2015Q3

REPORT INFORMATION
  Report Type: Spontaneous
  Country: US (occurrence: US)
  Receive Date: 20150715
  Receipt Date: 20150715
  Transmission Date: 20151125
  Serious: No
  Sender: FDA-Public Use
  Company Number: US-009507513-1506USA014971

PATIENT
  Age: 33 Year
  Sex: Female
  Weight: 64.85 kg

DRUGS (1)
  1. NUVARING [Suspect]
     Active Substance: ETHINYL ESTRADIOL\ETONOGESTREL
     Indication: MENSTRUAL CYCLE MANAGEMENT
     Dosage: UNK
     Route: 067

REACTIONS (3)
  - Muscle spasms [Unknown]
  - Vaginal discharge [Unknown]
  - Drug administration error [Unknown]
